FAERS Safety Report 8879936 (Version 1)
Quarter: 2012Q4

REPORT INFORMATION
  Report Type: 
  Country: AU (occurrence: AU)
  Receive Date: 20121031
  Receipt Date: 20121031
  Transmission Date: 20130627
  Serious: Yes (Death, Hospitalization)
  Sender: FDA-Public Use
  Company Number: AU-B.I. PHARMACEUTICALS,INC./RIDGEFIELD-2012-AU-01815AU

PATIENT
  Age: 83 Year
  Sex: Female

DRUGS (18)
  1. PRADAXA [Suspect]
     Indication: CEREBROVASCULAR ACCIDENT PROPHYLAXIS
     Dosage: 220 mg
     Dates: start: 20110712
  2. PRADAXA [Suspect]
     Indication: ATRIAL FIBRILLATION
  3. SERETIDE [Concomitant]
     Dosage: 250/25
  4. SOMAC [Concomitant]
     Dosage: 40 mg
  5. SPIRIVA [Concomitant]
     Dosage: 18 mcg
  6. NORVASC [Concomitant]
     Dosage: 10 mg
  7. POLY-TEARS [Concomitant]
  8. JANUVIA [Concomitant]
     Dosage: 50 mg
  9. LASIX [Concomitant]
     Dosage: 80 mg
  10. PROGOUT [Concomitant]
     Dosage: 400 mg
  11. OROXINE [Concomitant]
     Dosage: 500 mcg
  12. PANADOL OSTEO [Concomitant]
     Dosage: 3990 mcg
  13. GLYADE [Concomitant]
     Dosage: 320 mg
  14. BETALOC [Concomitant]
     Dosage: 25 mg
  15. TRITACE [Concomitant]
     Dosage: 10 mg
  16. VYTORIN [Concomitant]
     Dosage: 10/80
  17. TEMAZE [Concomitant]
     Dosage: 10 mg
  18. LOMOTIL [Concomitant]
     Indication: DIARRHOEA

REACTIONS (2)
  - Pneumonia [Fatal]
  - Respiratory tract infection [Unknown]
